FAERS Safety Report 20900078 (Version 2)
Quarter: 2022Q3

REPORT INFORMATION
  Report Type: Spontaneous
  Country: IN (occurrence: IN)
  Receive Date: 20220601
  Receipt Date: 20220708
  Transmission Date: 20221027
  Serious: Yes (Life-Threatening, Hospitalization, Other)
  Sender: FDA-Public Use
  Company Number: IN-LUPIN PHARMACEUTICALS INC.-2022-07850

PATIENT
  Age: 6 Year
  Sex: Male

DRUGS (9)
  1. VORICONAZOLE [Suspect]
     Active Substance: VORICONAZOLE
     Indication: Fusarium infection
     Dosage: 7 MILLIGRAM/KILOGRAM, QD
     Route: 065
  2. VORICONAZOLE [Suspect]
     Active Substance: VORICONAZOLE
     Indication: Brain abscess
  3. AMPHOTERICIN B [Suspect]
     Active Substance: AMPHOTERICIN B
     Indication: Brain abscess
     Dosage: 5 MILLIGRAM/KILOGRAM, QD
     Route: 065
  4. AMPHOTERICIN B [Suspect]
     Active Substance: AMPHOTERICIN B
     Indication: Fusarium infection
  5. TERBINAFINE [Suspect]
     Active Substance: TERBINAFINE
     Indication: Brain abscess
     Dosage: 5 MILLIGRAM/KILOGRAM, QD
     Route: 065
  6. TERBINAFINE [Suspect]
     Active Substance: TERBINAFINE
     Indication: Fusarium infection
  7. AMPHOTERICIN B [Suspect]
     Active Substance: AMPHOTERICIN B
     Indication: Evidence based treatment
     Dosage: 5 MILLIGRAM/KILOGRAM, QD
     Route: 065
  8. AMPHOTERICIN B [Suspect]
     Active Substance: AMPHOTERICIN B
     Indication: Fusarium infection
  9. AMPHOTERICIN B [Suspect]
     Active Substance: AMPHOTERICIN B
     Indication: Brain abscess

REACTIONS (1)
  - Drug ineffective [Unknown]
